FAERS Safety Report 6044763-0 (Version None)
Quarter: 2009Q1

REPORT INFORMATION
  Report Type: 
  Country: None (occurrence: None)
  Receive Date: 20090120
  Receipt Date: 20090113
  Transmission Date: 20090719
  Serious: No
  Sender: FDA-Public Use
  Company Number: US-B.I. PHARMACEUTICALS,INC./RIDGEFIELD-2008-BP-18518BP

PATIENT
  Sex: Female

DRUGS (3)
  1. MIRAPEX [Suspect]
     Indication: RESTLESS LEGS SYNDROME
  2. ESTRADIOL [Concomitant]
     Dosage: 1MG
     Dates: start: 20060712
  3. ASPIRIN [Concomitant]
     Dosage: 81MG
     Dates: start: 20060821

REACTIONS (1)
  - PATHOLOGICAL GAMBLING [None]
